FAERS Safety Report 14891334 (Version 1)
Quarter: 2018Q2

REPORT INFORMATION
  Report Type: Spontaneous
  Country: US (occurrence: US)
  Receive Date: 20180514
  Receipt Date: 20180514
  Transmission Date: 20180711
  Serious: No
  Sender: FDA-Public Use
  Company Number: US-UNITED THERAPEUTICS-UNT-2017-017023

PATIENT
  Sex: Male

DRUGS (4)
  1. REMODULIN [Suspect]
     Active Substance: TREPROSTINIL
     Dosage: 0.013 ?G/KG, CONTINUING
     Route: 058
  2. REMODULIN [Suspect]
     Active Substance: TREPROSTINIL
     Dosage: 0.011 ?G/KG, CONTINUING
     Route: 058
  3. REMODULIN [Suspect]
     Active Substance: TREPROSTINIL
     Indication: PULMONARY ARTERIAL HYPERTENSION
     Dosage: 0.01 ?G/KG, CONTINUING
     Route: 058
     Dates: start: 20171124
  4. REMODULIN [Suspect]
     Active Substance: TREPROSTINIL
     Dosage: 0.012 ?G/KG, CONTINUING
     Route: 058
     Dates: start: 20171204

REACTIONS (10)
  - Epistaxis [Not Recovered/Not Resolved]
  - Faecal volume increased [Not Recovered/Not Resolved]
  - Insomnia [Recovering/Resolving]
  - Headache [Unknown]
  - Oxygen saturation decreased [Unknown]
  - Infusion site pain [Not Recovered/Not Resolved]
  - Nausea [Recovering/Resolving]
  - Burning sensation [Not Recovered/Not Resolved]
  - Pain in extremity [Recovering/Resolving]
  - Pain in jaw [Unknown]

NARRATIVE: CASE EVENT DATE: 2017
